FAERS Safety Report 4617295-1 (Version None)
Quarter: 2005Q1

REPORT INFORMATION
  Report Type: 
  Country: None (occurrence: None)
  Receive Date: 20050323
  Receipt Date: 20050222
  Transmission Date: 20050727
  Serious: Yes (Hospitalization, Disabling)
  Sender: FDA-Public Use
  Company Number: US-MERCK-0502USA02757

PATIENT
  Age: 84 Year
  Sex: Female

DRUGS (7)
  1. VIOXX [Suspect]
     Indication: PAIN
     Route: 048
     Dates: start: 20020201
  2. VIOXX [Suspect]
     Route: 048
     Dates: end: 20050101
  3. PLAVIX [Concomitant]
     Route: 065
  4. ALTACE [Concomitant]
     Route: 065
  5. VYTORIN [Concomitant]
     Route: 048
  6. TOPROL-XL [Concomitant]
     Route: 065
  7. ZOCOR [Concomitant]
     Route: 048

REACTIONS (1)
  - CEREBROVASCULAR ACCIDENT [None]
